FAERS Safety Report 12253847 (Version 2)
Quarter: 2016Q2

REPORT INFORMATION
  Report Type: Spontaneous
  Country: US (occurrence: US)
  Receive Date: 20160411
  Receipt Date: 20160524
  Transmission Date: 20160815
  Serious: Yes (Other)
  Sender: FDA-Public Use
  Company Number: US-JNJFOC-20160406262

PATIENT
  Sex: Male
  Weight: 70.31 kg

DRUGS (2)
  1. LIALDA [Concomitant]
     Active Substance: MESALAMINE
     Route: 065
  2. SIMPONI [Suspect]
     Active Substance: GOLIMUMAB
     Indication: COLITIS ULCERATIVE
     Route: 058
     Dates: start: 201409, end: 20160328

REACTIONS (3)
  - Cholangitis sclerosing [Unknown]
  - Drug-induced liver injury [Recovered/Resolved]
  - Hepatic encephalopathy [Unknown]

NARRATIVE: CASE EVENT DATE: 2016
